FAERS Safety Report 24325470 (Version 1)
Quarter: 2024Q3

REPORT INFORMATION
  Report Type: Spontaneous
  Country: DE (occurrence: DE)
  Receive Date: 20240917
  Receipt Date: 20240917
  Transmission Date: 20241016
  Serious: Yes (Hospitalization, Other)
  Sender: JOHNSON AND JOHNSON
  Company Number: None

PATIENT
  Age: 17 Year
  Sex: Male
  Weight: 101 kg

DRUGS (1)
  1. CONCERTA [Suspect]
     Active Substance: METHYLPHENIDATE HYDROCHLORIDE
     Indication: Attention deficit hyperactivity disorder
     Route: 048
     Dates: start: 202408

REACTIONS (9)
  - Brain oedema [Recovering/Resolving]
  - Rhabdomyolysis [Recovering/Resolving]
  - Product substitution issue [Unknown]
  - Unresponsive to stimuli [Recovering/Resolving]
  - Pyrexia [Recovering/Resolving]
  - Hepatic failure [Recovering/Resolving]
  - Circulatory collapse [Recovering/Resolving]
  - Vena cava thrombosis [Recovering/Resolving]
  - Acute kidney injury [Recovering/Resolving]

NARRATIVE: CASE EVENT DATE: 20240815
